FAERS Safety Report 17742529 (Version 2)
Quarter: 2020Q2

REPORT INFORMATION
  Report Type: Spontaneous
  Country: US (occurrence: US)
  Receive Date: 20200505
  Receipt Date: 20200609
  Transmission Date: 20200714
  Serious: Yes (Hospitalization)
  Sender: FDA-Public Use
  Company Number: US-CADILA HEALTHCARE LIMITED-US-ZYDUS-050101

PATIENT

DRUGS (2)
  1. COLCHICINE. [Suspect]
     Active Substance: COLCHICINE
     Indication: PERICARDITIS
     Dosage: 0.6 MILLIGRAM, BID
     Route: 065
  2. COLCHICINE. [Suspect]
     Active Substance: COLCHICINE
     Dosage: 0.6 MILLIGRAM (60 TABLETS OF COLCHICINE 0.6MG)
     Route: 065

REACTIONS (20)
  - Shock [Recovered/Resolved]
  - Ventricular failure [Recovered/Resolved]
  - Paralysis [Recovered/Resolved]
  - Intentional overdose [Recovered/Resolved]
  - Distributive shock [Recovered/Resolved]
  - Alopecia [Recovered/Resolved]
  - Septic shock [Recovered/Resolved]
  - Acute kidney injury [Recovered/Resolved]
  - Transaminases increased [Recovered/Resolved]
  - Cardiogenic shock [Recovered/Resolved]
  - Hypotension [Recovered/Resolved]
  - Acute respiratory distress syndrome [Recovered/Resolved]
  - Hypokinesia [Recovered/Resolved]
  - Multiple organ dysfunction syndrome [Recovered/Resolved]
  - Diarrhoea [Recovered/Resolved]
  - Toxicity to various agents [Recovered/Resolved]
  - Coagulopathy [Recovered/Resolved]
  - Neutropenia [Recovered/Resolved]
  - Hepatic necrosis [Recovered/Resolved]
  - Renal failure [Recovered/Resolved]
